FAERS Safety Report 7157011-5 (Version None)
Quarter: 2010Q4

REPORT INFORMATION
  Report Type: 
  Country: None (occurrence: None)
  Receive Date: 20101214
  Receipt Date: 20100414
  Transmission Date: 20110411
  Serious: No
  Sender: FDA-Public Use
  Company Number: US-ASTRAZENECA-2010SE03682

PATIENT
  Age: 28631 Day
  Sex: Male

DRUGS (6)
  1. CRESTOR [Suspect]
     Indication: HYPERCHOLESTEROLAEMIA
     Route: 048
     Dates: start: 20100120
  2. CRESTOR [Suspect]
     Route: 048
     Dates: start: 20100331, end: 20100414
  3. PLAVIX [Concomitant]
     Indication: CARDIAC DISORDER
  4. ASPIRIN [Concomitant]
     Indication: CARDIAC DISORDER
  5. ACIPHEX [Concomitant]
     Indication: GASTROOESOPHAGEAL REFLUX DISEASE
  6. ALLOPURINOL [Concomitant]
     Indication: GOUT

REACTIONS (3)
  - ASTHMA [None]
  - MUSCULOSKELETAL PAIN [None]
  - MYALGIA [None]
